FAERS Safety Report 18200587 (Version 1)
Quarter: 2020Q3

REPORT INFORMATION
  Report Type: Other
  Country: US (occurrence: US)
  Receive Date: 20200827
  Receipt Date: 20200827
  Transmission Date: 20201103
  Serious: Yes (Death)
  Sender: FDA-Public Use
  Company Number: US-ROCHE-2661600

PATIENT
  Sex: Male

DRUGS (1)
  1. OCREVUS [Suspect]
     Active Substance: OCRELIZUMAB
     Indication: RELAPSING MULTIPLE SCLEROSIS
     Dosage: 300 MG DAY 1 AND DAY 15 AND 600 MG EVERY MONTH ON SUBSEQUENT DAYS
     Route: 065

REACTIONS (2)
  - COVID-19 [Fatal]
  - Status epilepticus [Fatal]
